FAERS Safety Report 10638687 (Version 1)
Quarter: 2014Q4

REPORT INFORMATION
  Report Type: Spontaneous
  Country: IT (occurrence: None)
  Receive Date: 20141204
  Receipt Date: 20141204
  Transmission Date: 20150529
  Serious: Yes (Hospitalization)
  Sender: FDA-Public Use
  Company Number: 2014-20858

PATIENT
  Age: 70 Year
  Sex: Male

DRUGS (1)
  1. EYLEA [Suspect]
     Active Substance: AFLIBERCEPT
     Indication: PRODUCT USED FOR UNKNOWN INDICATION
     Route: 031
     Dates: start: 20140819, end: 20141021

REACTIONS (5)
  - Abdominal pain upper [None]
  - Nausea [None]
  - Dry mouth [None]
  - Headache [None]
  - Vomiting [None]

NARRATIVE: CASE EVENT DATE: 201408
